FAERS Safety Report 8499208-8 (Version None)
Quarter: 2012Q2

REPORT INFORMATION
  Report Type: 
  Country: None (occurrence: None)
  Receive Date: 20120405
  Receipt Date: 20101122
  Transmission Date: 20120825
  Serious: Yes (Hospitalization)
  Sender: FDA-Public Use
  Company Number: PHHY2010US80336

PATIENT
  Age: 76 Year
  Sex: Male

DRUGS (1)
  1. RECLAST [Suspect]
     Dosage: 5 MG ANNUALLY, INFUSION
     Dates: start: 20101118

REACTIONS (2)
  - DYSPNOEA [None]
  - HYPOXIA [None]
